FAERS Safety Report 18343684 (Version 1)
Quarter: 2020Q4

REPORT INFORMATION
  Report Type: Report from Study
  Country: DE (occurrence: DE)
  Receive Date: 20201005
  Receipt Date: 20201005
  Transmission Date: 20210114
  Serious: Yes (Other)
  Sender: FDA-Public Use
  Company Number: DE-ADIENNEP-2020AD000453

PATIENT

DRUGS (4)
  1. THIOTEPA. [Suspect]
     Active Substance: THIOTEPA
     Indication: STEM CELL TRANSPLANT
     Dosage: 5 MG/KG DAILY ON DAYS -8 AND -7
  2. ANTITHYMOCYTE IMMUNOGLOBULIN [Suspect]
     Active Substance: THYMOCYTE IMMUNE GLOBULIN NOS
     Indication: STEM CELL TRANSPLANT
     Dosage: 15 MG/KG ON DAYS -10 TO -8
  3. FLUDARABINE [Suspect]
     Active Substance: FLUDARABINE PHOSPHATE
     Indication: STEM CELL TRANSPLANT
     Dosage: 40 MG/M2 DAILY ON DAYS -7 TO -4
  4. TREOSULFAN [Suspect]
     Active Substance: TREOSULFAN
     Indication: STEM CELL TRANSPLANT
     Dosage: 14 MG/M2 DAILY DAYS -5 TO -3

REACTIONS (2)
  - Muscle spasms [Recovered/Resolved]
  - Hemiplegia [Recovered/Resolved]
